FAERS Safety Report 14847042 (Version 1)
Quarter: 2018Q2

REPORT INFORMATION
  Report Type: Spontaneous
  Country: US (occurrence: US)
  Receive Date: 20180504
  Receipt Date: 20180504
  Transmission Date: 20180711
  Serious: Yes (Other)
  Sender: FDA-Public Use
  Company Number: US-PFIZER INC-2018180933

PATIENT
  Age: 68 Year
  Sex: Male
  Weight: 78.91 kg

DRUGS (6)
  1. VFEND [Suspect]
     Active Substance: VORICONAZOLE
     Indication: ASPERGILLUS INFECTION
     Dosage: 300 MG TWICE A DAY, ONE 200 MG AND TWO 50 MG
     Dates: start: 201801
  2. LEVOFLOXACIN. [Concomitant]
     Active Substance: LEVOFLOXACIN
     Dosage: 500 MG, 1X/DAY
  3. WARFARIN [Concomitant]
     Active Substance: WARFARIN
     Dosage: TAKES 5 MG SOMEDAYS AND 2.5 MG EVERY OTHER DAY
  4. ACYCLOVIR. [Concomitant]
     Active Substance: ACYCLOVIR
     Dosage: 800 MG, 1X/DAY
  5. AMOXICLAV [Concomitant]
     Active Substance: AMOXICILLIN\CLAVULANIC ACID
     Dosage: 875 MG, 2X/DAY
  6. HYDROCHLOROTHIAZIDE. [Concomitant]
     Active Substance: HYDROCHLOROTHIAZIDE
     Dosage: 12.5 MG, 1X/DAY

REACTIONS (2)
  - Off label use [Unknown]
  - Aneurysm [Unknown]
